FAERS Safety Report 25087035 (Version 1)
Quarter: 2025Q1

REPORT INFORMATION
  Report Type: Spontaneous
  Country: CA (occurrence: CA)
  Receive Date: 20250318
  Receipt Date: 20250318
  Transmission Date: 20250408
  Serious: Yes (Other)
  Sender: AMGEN
  Company Number: CA-AMGEN-CANSP2025045929

PATIENT
  Age: 28 Year
  Sex: Female

DRUGS (3)
  1. INFLIXIMAB [Suspect]
     Active Substance: INFLIXIMAB
     Indication: Colitis
     Route: 065
  2. USTEKINUMAB [Suspect]
     Active Substance: USTEKINUMAB
     Indication: Colitis
     Dosage: 90 MILLIGRAM, Q4WK
     Route: 065
  3. PREDNISONE [Concomitant]
     Active Substance: PREDNISONE
     Dosage: { 20 MILLIGRAM, QD

REACTIONS (6)
  - Colitis [Unknown]
  - Caesarean section [Unknown]
  - COVID-19 [Unknown]
  - Mastitis [Unknown]
  - Maternal exposure during pregnancy [Unknown]
  - Loss of therapeutic response [Unknown]
